FAERS Safety Report 7775680 (Version 2)
Quarter: 2013Q4

REPORT INFORMATION
  Report Type: Spontaneous
  Country: AU (occurrence: AU)
  Receive Date: 20110127
  Receipt Date: 20131224
  Transmission Date: 20140711
  Serious: No
  Sender: FDA-Public Use
  Company Number: AU-JNJFOC-20110106740

PATIENT
  Age: 58 Year
  Sex: Male

DRUGS (7)
  1. DUROGESIC [Suspect]
     Indication: NEURALGIA
     Route: 062
  2. DUROGESIC [Suspect]
     Indication: NEURALGIA
     Route: 062
  3. EMADINE SE [Concomitant]
     Route: 065
  4. ENDEP [Concomitant]
     Route: 065
  5. XANAX [Concomitant]
     Route: 065
  6. MOBIC [Concomitant]
     Route: 065
  7. ZOLOFT [Concomitant]
     Route: 065

REACTIONS (4)
  - Product adhesion issue [Not Recovered/Not Resolved]
  - Wrong technique in drug usage process [Not Recovered/Not Resolved]
  - Wrong technique in drug usage process [Not Recovered/Not Resolved]
  - Drug effect decreased [Not Recovered/Not Resolved]
